FAERS Safety Report 6192477-9 (Version None)
Quarter: 2009Q2

REPORT INFORMATION
  Report Type: 
  Country: None (occurrence: None)
  Receive Date: 20090518
  Receipt Date: 20090507
  Transmission Date: 20091009
  Serious: Yes (Life-Threatening)
  Sender: FDA-Public Use
  Company Number: AT-BAYER-200920217GPV

PATIENT
  Age: 84 Year
  Sex: Male

DRUGS (7)
  1. CIPROFLOXACIN HCL [Suspect]
     Indication: PYREXIA
     Dosage: UNIT DOSE: 200 MG
     Route: 041
     Dates: start: 20090402, end: 20090406
  2. BLOPRESS [Concomitant]
     Indication: HYPERTENSION
     Dosage: PERMANENT THERAPY
     Route: 048
  3. DAFLON [Concomitant]
     Indication: DRUG USE FOR UNKNOWN INDICATION
     Dosage: PERMANENT THERAPY
     Route: 048
  4. DIFLUCAN [Concomitant]
     Indication: PYREXIA
     Dosage: TOTAL DAILY DOSE: 400 MG  UNIT DOSE: 400 MG
     Route: 042
     Dates: start: 20090403, end: 20090406
  5. DOXIUM [Concomitant]
     Indication: DRUG USE FOR UNKNOWN INDICATION
     Dosage: PERMANENT THERAPY
     Route: 048
  6. NEORECORMON [Concomitant]
     Indication: ANAEMIA
     Dosage: 0,6 ML
     Route: 065
  7. INSULIN [Concomitant]
     Indication: TYPE 2 DIABETES MELLITUS
     Dosage: FOR YEARS
     Route: 058

REACTIONS (4)
  - HYPOGLYCAEMIA [None]
  - MUSCLE TWITCHING [None]
  - MYOCLONUS [None]
  - STUPOR [None]
